FAERS Safety Report 20717438 (Version 1)
Quarter: 2022Q2

REPORT INFORMATION
  Report Type: Spontaneous
  Country: FR (occurrence: FR)
  Receive Date: 20220417
  Receipt Date: 20220417
  Transmission Date: 20220721
  Serious: Yes (Hospitalization)
  Sender: FDA-Public Use
  Company Number: None

PATIENT
  Age: 69 Year
  Sex: Female
  Weight: 124.7 kg

DRUGS (4)
  1. SPRYCEL [Suspect]
     Active Substance: DASATINIB
     Indication: Chronic myeloid leukaemia
     Route: 048
     Dates: start: 20180903
  2. COMIRNATY [Suspect]
     Active Substance: TOZINAMERAN
     Indication: COVID-19 immunisation
     Dosage: R1
     Route: 030
     Dates: start: 20220113, end: 20220113
  3. VAXZEVRIA [Concomitant]
     Active Substance: AZD-1222
     Indication: COVID-19 immunisation
     Dosage: D1+D2
     Route: 030
     Dates: start: 20210410, end: 20210625
  4. COMIRNATY 30 microgrammes/dose, dispersion injectable.Vaccin a ARNm (a [Concomitant]
     Indication: COVID-19 immunisation
     Dosage: D3
     Route: 030
     Dates: start: 20210820, end: 20210820

REACTIONS (1)
  - Vaccination failure [Recovering/Resolving]

NARRATIVE: CASE EVENT DATE: 20220224
